FAERS Safety Report 13087868 (Version 1)
Quarter: 2017Q1

REPORT INFORMATION
  Report Type: Report from Study
  Country: JP (occurrence: JP)
  Receive Date: 20170105
  Receipt Date: 20170105
  Transmission Date: 20170428
  Serious: Yes (Death)
  Sender: FDA-Public Use
  Company Number: JP-ASTELLAS-2016JP022846

PATIENT
  Age: 64 Year
  Sex: Male
  Weight: 61 kg

DRUGS (2)
  1. ENZALUTAMIDE [Suspect]
     Active Substance: ENZALUTAMIDE
     Indication: HORMONE-REFRACTORY PROSTATE CANCER
     Route: 048
     Dates: start: 20150904, end: 20151102
  2. GONAX [Concomitant]
     Active Substance: DEGARELIX
     Indication: HORMONE-REFRACTORY PROSTATE CANCER
     Route: 065

REACTIONS (1)
  - Pneumonia [Fatal]

NARRATIVE: CASE EVENT DATE: 20160214
